FAERS Safety Report 5032877-3 (Version None)
Quarter: 2006Q2

REPORT INFORMATION
  Report Type: 
  Country: None (occurrence: None)
  Receive Date: 20060622
  Receipt Date: 20060616
  Transmission Date: 20061013
  Serious: Yes (Death, Other)
  Sender: FDA-Public Use
  Company Number: GB-GLAXOSMITHKLINE-B0428333A

PATIENT
  Sex: Male

DRUGS (22)
  1. BECLOMETHASONE DIPROPIONATE [Suspect]
     Route: 055
  2. ASPIRIN [Suspect]
  3. DILTIAZEM [Suspect]
  4. FUROSEMIDE [Suspect]
  5. GAVISON [Suspect]
  6. METOCLOPRAMIDE [Suspect]
  7. NITROLINGUAL [Suspect]
  8. SALBUTAMOL [Suspect]
     Route: 055
  9. SPIRONOLACTONE [Suspect]
  10. ATORVASTATIN CALCIUM [Suspect]
  11. DEXAMETHASONE TAB [Suspect]
  12. DOSULEPIN [Suspect]
  13. FRUMIL [Suspect]
  14. LACTULOSE [Suspect]
  15. LANSOPRAZOLE [Suspect]
  16. NOZINAN [Suspect]
  17. OXYCODONE HCL [Suspect]
  18. OXYGEN [Suspect]
     Route: 055
  19. COMBIVENT [Suspect]
     Indication: CHRONIC OBSTRUCTIVE PULMONARY DISEASE
     Route: 055
     Dates: start: 20030617, end: 20040513
  20. SPIRIVA [Suspect]
     Indication: CHRONIC OBSTRUCTIVE PULMONARY DISEASE
     Route: 055
     Dates: start: 20030617, end: 20040719
  21. SYMBICORT [Suspect]
     Route: 055
  22. TEMAZEPAM [Suspect]

REACTIONS (2)
  - LUNG NEOPLASM MALIGNANT [None]
  - MESOTHELIOMA [None]
